FAERS Safety Report 25878800 (Version 1)
Quarter: 2025Q4

REPORT INFORMATION
  Report Type: Spontaneous
  Country: US (occurrence: None)
  Receive Date: 20251003
  Receipt Date: 20251003
  Transmission Date: 20260118
  Serious: No
  Sender: FDA-CTU
  Company Number: None

PATIENT
  Age: 78 Year
  Sex: Male

DRUGS (1)
  1. LEQVIO [Suspect]
     Active Substance: INCLISIRAN SODIUM
     Dosage: INJECT 284MG UNDER THE SKIN (SUBCUTANEOUS INJECTION) EVERY 6 MONTHS
     Route: 058
     Dates: start: 20250411

REACTIONS (1)
  - Spinal fusion surgery [None]

NARRATIVE: CASE EVENT DATE: 20250916
